FAERS Safety Report 6757970-6 (Version None)
Quarter: 2010Q2

REPORT INFORMATION
  Report Type: 
  Country: None (occurrence: None)
  Receive Date: 20100604
  Receipt Date: 20100604
  Transmission Date: 20101027
  Serious: Yes (Other)
  Sender: FDA-Public Use
  Company Number: None

PATIENT
  Age: 38 Year
  Sex: Female
  Weight: 53.978 kg

DRUGS (2)
  1. SAVELLA [Suspect]
     Indication: NERVE INJURY
     Dosage: 50MG BID PO
     Route: 048
     Dates: start: 20100525, end: 20100603
  2. SAVELLA [Suspect]
     Indication: POST PROCEDURAL COMPLICATION
     Dosage: 50MG BID PO
     Route: 048
     Dates: start: 20100525, end: 20100603

REACTIONS (3)
  - INJURY [None]
  - ORTHOSTATIC HYPOTENSION [None]
  - SYNCOPE [None]
